FAERS Safety Report 4457288-0 (Version None)
Quarter: 2004Q3

REPORT INFORMATION
  Report Type: 
  Country: None (occurrence: None)
  Receive Date: 20040922
  Receipt Date: 20040909
  Transmission Date: 20050211
  Serious: Yes (Other)
  Sender: FDA-Public Use
  Company Number: 2004064593

PATIENT
  Age: 53 Year
  Sex: Male
  Weight: 81.6475 kg

DRUGS (2)
  1. LIPITOR [Suspect]
     Indication: BLOOD CHOLESTEROL INCREASED
     Dosage: 20 MG (20 MG, 1 IN 1 D), ORAL
     Route: 048
     Dates: end: 20040728
  2. SUMATRIPTAN SUCCINATE [Concomitant]

REACTIONS (14)
  - CHOLECYSTITIS [None]
  - CHROMATURIA [None]
  - COMPLETED SUICIDE [None]
  - DIARRHOEA [None]
  - HEPATITIS [None]
  - INSOMNIA [None]
  - LATEX ALLERGY [None]
  - MALAISE [None]
  - NAUSEA [None]
  - PRURITUS [None]
  - PRURITUS GENERALISED [None]
  - SCRATCH [None]
  - SKIN BLEEDING [None]
  - WEIGHT DECREASED [None]
